FAERS Safety Report 8393682 (Version 10)
Quarter: 2013Q2

REPORT INFORMATION
  Report Type: Spontaneous
  Country: US (occurrence: US)
  Receive Date: 20120207
  Receipt Date: 20130509
  Transmission Date: 20140414
  Serious: Yes (Hospitalization, Congenital Anomaly, Other)
  Sender: FDA-Public Use
  Company Number: US-PFIZER INC-2011289827

PATIENT
  Sex: Female
  Weight: 2.9 kg

DRUGS (14)
  1. ZOLOFT [Suspect]
     Indication: ANXIETY
     Dosage: 50 MG, 1X/DAY
     Route: 064
     Dates: start: 20031023, end: 20040416
  2. ZOLOFT [Suspect]
     Indication: DEPRESSION
     Dosage: 50 MG, 1X/DAY
     Route: 064
     Dates: start: 20040713, end: 20040718
  3. ZOLOFT [Suspect]
     Indication: AFFECTIVE DISORDER
     Dosage: 100 MG, UNK
     Route: 064
     Dates: start: 20040820, end: 200511
  4. PRENATAL VITAMINS [Concomitant]
     Dosage: UNK
     Route: 064
  5. PHENERGAN [Concomitant]
     Indication: NAUSEA
     Dosage: 12.5 MG, 1X/DAY
     Route: 064
     Dates: start: 20040202, end: 20040212
  6. PHENERGAN [Concomitant]
     Indication: VOMITING
  7. VITAMIN B6 [Concomitant]
     Indication: NAUSEA
     Dosage: 100 MG, 1X/DAY
     Route: 064
  8. ROBITUSSIN A-C /OLD FORM/ [Concomitant]
     Dosage: 1 ML, 4X/DAY
     Route: 064
  9. AMOXIL [Concomitant]
     Dosage: 500 MG, 3X/DAY
     Route: 064
  10. FERROUS FUMARATE [Concomitant]
     Dosage: UNK
     Route: 064
  11. FOLIC ACID [Concomitant]
     Dosage: UNK
     Route: 064
  12. ZYRTEC [Concomitant]
     Indication: HYPERSENSITIVITY
     Dosage: 10 MG,DAILY PRN
     Route: 064
  13. CEFOTETAN [Concomitant]
     Indication: AMNIOTIC CAVITY INFECTION
     Dosage: ONE DOSE
     Route: 064
     Dates: start: 20040820
  14. CODEINE AND GUAIFENESIN [Concomitant]
     Indication: RESPIRATORY TRACT CONGESTION
     Dosage: LIQUID FORM, UNK
     Route: 064
     Dates: start: 20040710

REACTIONS (14)
  - Foetal exposure during pregnancy [Not Recovered/Not Resolved]
  - Transposition of the great vessels [Not Recovered/Not Resolved]
  - Heart disease congenital [Unknown]
  - Ventricular septal defect [Not Recovered/Not Resolved]
  - Tricuspid valve incompetence [Not Recovered/Not Resolved]
  - Atrial septal defect [Recovered/Resolved]
  - Mitral valve incompetence [Recovered/Resolved]
  - Pulmonary artery stenosis congenital [Recovered/Resolved]
  - Atelectasis neonatal [Recovering/Resolving]
  - Pulmonary oedema neonatal [Unknown]
  - Aortic stenosis [Unknown]
  - Right atrial dilatation [Unknown]
  - Left ventricular hypertrophy [Recovered/Resolved]
  - Patent ductus arteriosus [Unknown]
